FAERS Safety Report 6164877-4 (Version None)
Quarter: 2009Q2

REPORT INFORMATION
  Report Type: 
  Country: None (occurrence: None)
  Receive Date: 20090421
  Receipt Date: 20090407
  Transmission Date: 20091009
  Serious: Yes (Other)
  Sender: FDA-Public Use
  Company Number: B0570188A

PATIENT
  Age: 60 Year
  Sex: Male

DRUGS (5)
  1. MELPHALAN (FORMULATION UNKNOWN) (GENERIC) (MELPHALAN) [Suspect]
     Indication: MULTIPLE MYELOMA
  2. PREDNISOLONE [Suspect]
     Indication: MULTIPLE MYELOMA
  3. THALIDOMIDE [Suspect]
     Indication: MULTIPLE MYELOMA
  4. BORTEZOMIB (FORMULATION UNKNOWN) (BORTEZOMIB) [Suspect]
  5. DEXAMETHASONE [Suspect]
     Dosage: 20 MG

REACTIONS (9)
  - ALANINE AMINOTRANSFERASE INCREASED [None]
  - DIARRHOEA [None]
  - DRUG RASH WITH EOSINOPHILIA AND SYSTEMIC SYMPTOMS [None]
  - FACE OEDEMA [None]
  - HERPES ZOSTER [None]
  - HUMAN HERPES VIRUS 6 SEROLOGY POSITIVE [None]
  - HYPOGAMMAGLOBULINAEMIA [None]
  - LYMPHOCYTE MORPHOLOGY ABNORMAL [None]
  - SKIN EXFOLIATION [None]
